FAERS Safety Report 8715190 (Version 2)
Quarter: 2012Q4

REPORT INFORMATION
  Report Type: 
  Country: US (occurrence: US)
  Receive Date: 20120809
  Receipt Date: 20120924
  Transmission Date: 20130627
  Serious: Yes (Other)
  Sender: FDA-Public Use
  Company Number: US-PFIZER INC-2012192429

PATIENT
  Age: 73 Year
  Sex: Female
  Weight: 58.96 kg

DRUGS (6)
  1. CHANTIX [Suspect]
     Indication: SMOKING CESSATION THERAPY
     Dosage: 0.5 mg, 1x/day
     Route: 048
     Dates: start: 201207, end: 2012
  2. CHANTIX [Suspect]
     Dosage: 0.5 mg, UNK
     Route: 048
     Dates: start: 2012, end: 2012
  3. CHANTIX [Suspect]
     Dosage: 0.5 mg, 2x/day
     Route: 048
     Dates: start: 2012
  4. NORCO [Concomitant]
     Indication: PAIN
     Dosage: UNK
  5. NORCO [Concomitant]
     Indication: MUSCULAR WEAKNESS
  6. NORCO [Concomitant]
     Indication: MUSCULAR WEAKNESS

REACTIONS (3)
  - Animal bite [Unknown]
  - Oedema peripheral [Unknown]
  - Product odour abnormal [Unknown]
